FAERS Safety Report 15692074 (Version 3)
Quarter: 2019Q2

REPORT INFORMATION
  Report Type: Spontaneous
  Country: US (occurrence: US)
  Receive Date: 20181205
  Receipt Date: 20190607
  Transmission Date: 20190711
  Serious: No
  Sender: FDA-Public Use
  Company Number: US-INCYTE CORPORATION-2018IN012162

PATIENT

DRUGS (3)
  1. JAKAFI [Suspect]
     Active Substance: RUXOLITINIB
     Indication: MYELOPROLIFERATIVE NEOPLASM
     Dosage: 20 MG QAM, 10 MG QPM
     Route: 048
     Dates: start: 2018
  2. JAKAFI [Suspect]
     Active Substance: RUXOLITINIB
     Dosage: 20 MILLIGRAM, BID
     Route: 048
     Dates: start: 20180203
  3. JAKAFI [Suspect]
     Active Substance: RUXOLITINIB
     Indication: COLON CANCER
     Dosage: 2X10MG (20MG) QAM, 1X10MG QPM
     Route: 048
     Dates: start: 20180203

REACTIONS (4)
  - Product dose omission [Unknown]
  - Off label use [Unknown]
  - Dysuria [Unknown]
  - Pruritus [Unknown]

NARRATIVE: CASE EVENT DATE: 2018
